FAERS Safety Report 9778014 (Version 1)
Quarter: 2013Q4

REPORT INFORMATION
  Report Type: Spontaneous
  Country: IT (occurrence: IT)
  Receive Date: 20131223
  Receipt Date: 20131223
  Transmission Date: 20140711
  Serious: Yes (Hospitalization)
  Sender: FDA-Public Use
  Company Number: IT-TEVA-451263ISR

PATIENT
  Age: 60 Year
  Sex: Female
  Weight: 57 kg

DRUGS (9)
  1. FLUORPOURACILE [Suspect]
     Indication: BREAST CANCER
     Dosage: 695 MILLIGRAM DAILY;
     Route: 040
     Dates: start: 20130823, end: 20131115
  2. METOTRESSATO TEVA [Suspect]
     Indication: BREAST CANCER
     Dosage: 46.3 MILLIGRAM DAILY;
     Route: 040
     Dates: start: 20130823, end: 20131115
  3. ENDOXAN BAXTER [Suspect]
     Indication: BREAST CANCER
     Dosage: 695 MILLIGRAM DAILY; POWDER FOR SOLUTION FOR INJECTION
     Route: 040
     Dates: start: 20130823, end: 20131115
  4. PANTOPRAZOLO SODICO [Concomitant]
     Indication: PROPHYLAXIS
     Dosage: 80 MILLIGRAM DAILY;
     Route: 048
     Dates: start: 20130125
  5. OXICODONE CLORIDRATO [Concomitant]
     Indication: METASTATIC PAIN
     Dosage: 80 MILLIGRAM DAILY;
     Route: 048
     Dates: start: 20130125
  6. ZOFRAN [Concomitant]
     Indication: PROPHYLAXIS OF NAUSEA AND VOMITING
     Dosage: 8 MILLIGRAM DAILY;
     Route: 040
     Dates: start: 20130823, end: 20131115
  7. DESAMETASONE FOSFATO HOSPIRA [Concomitant]
     Indication: PROPHYLAXIS OF NAUSEA AND VOMITING
     Dosage: 20 MILLIGRAM DAILY;
     Route: 042
     Dates: start: 20130823, end: 20131115
  8. ZARZIO 60MU/ML [Concomitant]
     Indication: PROPHYLAXIS
     Dosage: 1 DOSAGE FORMS DAILY;
     Route: 058
     Dates: start: 20130830, end: 20131115
  9. FERLIXIT [Concomitant]
     Indication: IRON DEFICIENCY
     Dosage: 2 DOSAGE FORMS DAILY;
     Route: 042
     Dates: start: 20130830, end: 20131115

REACTIONS (3)
  - Asthenia [Recovered/Resolved]
  - Pancytopenia [Recovered/Resolved]
  - Toxicity to various agents [None]
